FAERS Safety Report 8049480-3 (Version None)
Quarter: 2012Q1

REPORT INFORMATION
  Report Type: 
  Country: None (occurrence: None)
  Receive Date: 20120117
  Receipt Date: 20120111
  Transmission Date: 20120608
  Serious: Yes (Other)
  Sender: FDA-Public Use
  Company Number: CN-PFIZER INC-2012001412

PATIENT
  Age: 29 Year
  Sex: Male

DRUGS (3)
  1. RAPAMUNE [Suspect]
     Indication: RENAL TRANSPLANT
     Dosage: 1 MG, DAILY
     Route: 048
     Dates: start: 20111201, end: 20111222
  2. PROGRAF [Concomitant]
     Dosage: UNK
     Dates: end: 20111130
  3. PROGRAF [Concomitant]
     Dosage: UNK

REACTIONS (2)
  - COUGH [None]
  - DYSPNOEA [None]
